FAERS Safety Report 23631737 (Version 1)
Quarter: 2024Q1

REPORT INFORMATION
  Report Type: Spontaneous
  Country: US (occurrence: None)
  Receive Date: 20240313
  Receipt Date: 20240313
  Transmission Date: 20240410
  Serious: Yes (Death)
  Sender: FDA-Public Use
  Company Number: None

PATIENT
  Age: 68 Year
  Sex: Male

DRUGS (1)
  1. OFEV [Suspect]
     Active Substance: NINTEDANIB
     Indication: Interstitial lung disease
     Dosage: FREQUENCY : TWICE A DAY;?
     Route: 048
     Dates: start: 20220524, end: 20230714

REACTIONS (6)
  - Acute respiratory failure [None]
  - Septic shock [None]
  - Multiple organ dysfunction syndrome [None]
  - Anaemia [None]
  - Renal failure [None]
  - Bronchopulmonary aspergillosis [None]

NARRATIVE: CASE EVENT DATE: 20230714
